FAERS Safety Report 7770578-9 (Version None)
Quarter: 2011Q3

REPORT INFORMATION
  Report Type: 
  Country: None (occurrence: None)
  Receive Date: 20110922
  Receipt Date: 20110919
  Transmission Date: 20111222
  Serious: Yes (Death, Hospitalization)
  Sender: FDA-Public Use
  Company Number: PHHY2011US27219

PATIENT
  Sex: Male

DRUGS (9)
  1. DICLOFENAC SODIUM [Concomitant]
     Dosage: UNK UKN, OT
  2. ARICEPT [Concomitant]
     Dosage: 1 DF, UNK
     Route: 048
  3. SULAR [Concomitant]
     Dosage: UNK UKN, OT
  4. ZOCOR [Concomitant]
     Dosage: UNK UKN, OT
  5. PROZAC [Concomitant]
     Dosage: 1 DF, UNK
     Route: 048
  6. ROPINIROLE [Concomitant]
     Dosage: UNK UKN, OT
  7. ZOFRAN [Concomitant]
     Dosage: UNK UKN, OT
  8. GILENYA [Suspect]
     Indication: RELAPSING-REMITTING MULTIPLE SCLEROSIS
     Dosage: 1 DF, DAILY
     Route: 048
     Dates: start: 20110214, end: 20110301
  9. COUMADIN [Concomitant]
     Dosage: UNK UKN, OT

REACTIONS (14)
  - BLOOD GLUCOSE INCREASED [None]
  - DYSPHAGIA [None]
  - PLEURAL EFFUSION [None]
  - INTERNATIONAL NORMALISED RATIO INCREASED [None]
  - RESPIRATORY DISTRESS [None]
  - C-REACTIVE PROTEIN INCREASED [None]
  - LIVER FUNCTION TEST ABNORMAL [None]
  - RESPIRATORY FAILURE [None]
  - COUGH [None]
  - DEHYDRATION [None]
  - BLOOD CREATININE INCREASED [None]
  - PNEUMONIA ASPIRATION [None]
  - ATELECTASIS [None]
  - MULTIPLE SCLEROSIS [None]
